FAERS Safety Report 5170141-2 (Version None)
Quarter: 2006Q4

REPORT INFORMATION
  Report Type: 
  Country: None (occurrence: None)
  Receive Date: 20061212
  Receipt Date: 20061128
  Transmission Date: 20070319
  Serious: Yes (Other)
  Sender: FDA-Public Use
  Company Number: FR-ELI_LILLY_AND_COMPANY-FR200612000054

PATIENT
  Age: 57 Year
  Sex: Female

DRUGS (5)
  1. FORTEO [Suspect]
     Indication: OSTEOPOROSIS
     Dosage: 20 UG, DAILY (1/D)
     Route: 058
     Dates: start: 20060726
  2. OXYGEN [Concomitant]
     Indication: LUNG DISORDER
     Dates: start: 20050801
  3. CORTICOSTEROIDS [Concomitant]
     Indication: LUNG DISORDER
     Dosage: 130 MG, UNK
  4. CORTICOSTEROIDS [Concomitant]
     Dosage: 5 MG, UNK
  5. LEVOTHYROXINE SODIUM [Concomitant]
     Dosage: 100 MG, UNK

REACTIONS (7)
  - ADRENAL INSUFFICIENCY [None]
  - BACK PAIN [None]
  - BONE PAIN [None]
  - INFLAMMATION [None]
  - MUSCULOSKELETAL CHEST PAIN [None]
  - PAIN [None]
  - PAIN IN EXTREMITY [None]
